FAERS Safety Report 16287467 (Version 5)
Quarter: 2019Q2

REPORT INFORMATION
  Report Type: Report from Study
  Country: GB (occurrence: GB)
  Receive Date: 20190508
  Receipt Date: 20190614
  Transmission Date: 20190711
  Serious: Yes (Hospitalization, Other)
  Sender: FDA-Public Use
  Company Number: GB-BRISTOL-MYERS SQUIBB COMPANY-BMS-2019-044264

PATIENT
  Weight: 29.1 kg

DRUGS (8)
  1. NIVOLUMAB [Suspect]
     Active Substance: NIVOLUMAB
     Indication: NEUROBLASTOMA RECURRENT
     Dosage: UNK, Q2WK
     Route: 042
     Dates: start: 20190424
  2. MORPHINE SULPHATE [Concomitant]
     Active Substance: MORPHINE SULFATE
     Indication: ANALGESIC THERAPY
     Dosage: 24 MILLIGRAM, PRN
     Route: 048
     Dates: start: 20190501
  3. PARACETAMOL [Concomitant]
     Active Substance: ACETAMINOPHEN
     Indication: ANALGESIC THERAPY
     Dosage: 1305 MILLIGRAM
     Route: 042
     Dates: start: 20190501, end: 20190504
  4. ONDANSETRON [Concomitant]
     Active Substance: ONDANSETRON
     Indication: ANTIEMETIC SUPPORTIVE CARE
     Dosage: 12 MILLIGRAM
     Route: 042
     Dates: start: 20190501, end: 20190506
  5. 131-I MIBG [Suspect]
     Active Substance: IOBENGUANE I-131
     Indication: NEUROBLASTOMA RECURRENT
     Dosage: 1 DOSAGE FORM = STAT X 2 DOSES
     Route: 065
     Dates: start: 20190109, end: 20190123
  6. PLASMALYTE 148 [Concomitant]
     Active Substance: ELECTROLYTES NOS
     Indication: FLUID REPLACEMENT
     Dosage: UNK
     Route: 042
     Dates: start: 20190430
  7. CYCLIZINE [Concomitant]
     Active Substance: CYCLIZINE
     Indication: ANTIEMETIC SUPPORTIVE CARE
     Dosage: 50 MILLIGRAM, PRN
     Route: 042
     Dates: start: 20190503
  8. MORPHINE SULPHATE [Concomitant]
     Active Substance: MORPHINE SULFATE
     Indication: PRODUCT USED FOR UNKNOWN INDICATION
     Dosage: 50 MILLIGRAM, BID
     Route: 048
     Dates: start: 20190501, end: 20190510

REACTIONS (6)
  - Constipation [Recovered/Resolved]
  - Abdominal distension [Not Recovered/Not Resolved]
  - Vomiting [Not Recovered/Not Resolved]
  - Urinary retention [Recovered/Resolved]
  - Device related infection [Recovered/Resolved]
  - Seizure [Recovered/Resolved]

NARRATIVE: CASE EVENT DATE: 20190430
